FAERS Safety Report 4577430-0 (Version None)
Quarter: 2005Q1

REPORT INFORMATION
  Report Type: 
  Country: None (occurrence: None)
  Receive Date: 20050208
  Receipt Date: 20050118
  Transmission Date: 20050727
  Serious: Yes (Disabling, Other)
  Sender: FDA-Public Use
  Company Number: GB-YAMANOUCHI-YEHQ20050126

PATIENT
  Age: 40 Year
  Sex: Female

DRUGS (1)
  1. VESICARE [Suspect]
     Indication: HYPERTONIC BLADDER
     Dosage: 5 MG
     Route: 048
     Dates: start: 20041201

REACTIONS (3)
  - CONSTIPATION [None]
  - DIZZINESS [None]
  - MULTIPLE SCLEROSIS RELAPSE [None]
